FAERS Safety Report 12191989 (Version 3)
Quarter: 2016Q2

REPORT INFORMATION
  Report Type: Spontaneous
  Country: JP (occurrence: JP)
  Receive Date: 20160318
  Receipt Date: 20160414
  Transmission Date: 20160815
  Serious: Yes (Other)
  Sender: FDA-Public Use
  Company Number: JP-SA-2016SA051921

PATIENT
  Age: 24 Year
  Sex: Female

DRUGS (1)
  1. DELLEGRA [Suspect]
     Active Substance: FEXOFENADINE HYDROCHLORIDE\PSEUDOEPHEDRINE HYDROCHLORIDE
     Indication: RHINITIS ALLERGIC
     Route: 048

REACTIONS (3)
  - Hyperkinesia [Recovered/Resolved]
  - Mental disorder [Recovered/Resolved]
  - Aggression [Recovered/Resolved]
